FAERS Safety Report 20226726 (Version 2)
Quarter: 2022Q2

REPORT INFORMATION
  Report Type: Spontaneous
  Country: BR (occurrence: BR)
  Receive Date: 20211224
  Receipt Date: 20220628
  Transmission Date: 20220721
  Serious: Yes (Other)
  Sender: FDA-Public Use
  Company Number: BR-GSKCCFAMERS-Case-01246189_AE-72967

PATIENT

DRUGS (2)
  1. TRELEGY ELLIPTA [Suspect]
     Active Substance: FLUTICASONE FUROATE\UMECLIDINIUM BROMIDE\VILANTEROL TRIFENATATE
     Indication: Chronic obstructive pulmonary disease
     Dosage: UNK, QD, ONCE DAILY, AT THE MORNING
     Route: 055
     Dates: start: 20211214
  2. TRELEGY ELLIPTA [Suspect]
     Active Substance: FLUTICASONE FUROATE\UMECLIDINIUM BROMIDE\VILANTEROL TRIFENATATE
     Indication: Pneumonia

REACTIONS (13)
  - Urinary retention [Not Recovered/Not Resolved]
  - Erythema [Recovered/Resolved]
  - Blister [Unknown]
  - Muscle spasms [Recovered/Resolved]
  - Hypersensitivity [Unknown]
  - Condition aggravated [Unknown]
  - Urine output decreased [Unknown]
  - Heart rate increased [Unknown]
  - Oxygen saturation decreased [Unknown]
  - Product communication issue [Unknown]
  - Incorrect dose administered [Unknown]
  - Wrong technique in product usage process [Unknown]
  - Product use in unapproved indication [Unknown]

NARRATIVE: CASE EVENT DATE: 20211201
